FAERS Safety Report 6761126-0 (Version None)
Quarter: 2010Q2

REPORT INFORMATION
  Report Type: 
  Country: None (occurrence: None)
  Receive Date: 20100608
  Receipt Date: 20100528
  Transmission Date: 20101027
  Serious: Yes (Other)
  Sender: FDA-Public Use
  Company Number: US-JNJFOC-20100600549

PATIENT
  Sex: Male

DRUGS (2)
  1. TYLENOL CHILD MELTAWAYS BUBBLEGUM BURST [Suspect]
     Route: 048
  2. TYLENOL CHILD MELTAWAYS BUBBLEGUM BURST [Suspect]
     Indication: PYREXIA
     Route: 048

REACTIONS (4)
  - DRUG INEFFECTIVE [None]
  - DYSPHAGIA [None]
  - PRODUCT QUALITY ISSUE [None]
  - SWOLLEN TONGUE [None]
